FAERS Safety Report 4600306-7 (Version None)
Quarter: 2005Q1

REPORT INFORMATION
  Report Type: 
  Country: None (occurrence: None)
  Receive Date: 20050303
  Receipt Date: 20050114
  Transmission Date: 20050727
  Serious: Yes (Hospitalization)
  Sender: FDA-Public Use
  Company Number: FR_050105608

PATIENT
  Age: 79 Year
  Sex: Female

DRUGS (3)
  1. ZYPREXA [Suspect]
     Indication: DELUSION
     Dosage: 30 MG/1 DAY
     Route: 048
     Dates: start: 20041101
  2. HALDOL                    (HALOPERIDOL DECANOATE) [Concomitant]
  3. SULFARLEM           (ANETHOLE TRITHIONE) [Concomitant]

REACTIONS (2)
  - CONFUSIONAL STATE [None]
  - TRISMUS [None]
